FAERS Safety Report 16843876 (Version 1)
Quarter: 2019Q3

REPORT INFORMATION
  Report Type: Spontaneous
  Country: CA (occurrence: CA)
  Receive Date: 20190924
  Receipt Date: 20190924
  Transmission Date: 20191005
  Serious: Yes (Death, Hospitalization, Other)
  Sender: FDA-Public Use
  Company Number: CA-AUROBINDO-AUR-APL-2019-062376

PATIENT
  Age: 40 Year

DRUGS (3)
  1. HEPARIN [Suspect]
     Active Substance: HEPARIN SODIUM
     Indication: THROMBOSIS
     Route: 042
  2. CLOPIDOGREL [Suspect]
     Active Substance: CLOPIDOGREL BISULFATE
     Indication: TRANSIENT ISCHAEMIC ATTACK
     Dosage: 300 MILLIGRAM, LOADING DOSE
     Route: 065
  3. CLOPIDOGREL [Suspect]
     Active Substance: CLOPIDOGREL BISULFATE
     Dosage: 75 MILLIGRAM, DAILY
     Route: 065

REACTIONS (7)
  - Haemoglobin decreased [Fatal]
  - Unresponsive to stimuli [Fatal]
  - Retroperitoneal haemorrhage [Fatal]
  - Abdominal pain [Fatal]
  - Respiratory rate decreased [Fatal]
  - Blood pressure decreased [Fatal]
  - Cardiac arrest [Fatal]
